FAERS Safety Report 7853078-7 (Version None)
Quarter: 2011Q4

REPORT INFORMATION
  Report Type: 
  Country: None (occurrence: None)
  Receive Date: 20111026
  Receipt Date: 20111011
  Transmission Date: 20120403
  Serious: Yes (Hospitalization)
  Sender: FDA-Public Use
  Company Number: JP-EISAI INC-E3810-04955-SPO-JP

PATIENT
  Age: 51 Year
  Sex: Female

DRUGS (5)
  1. RABEPRAZOLE SODIUM [Suspect]
     Indication: GASTROOESOPHAGEAL REFLUX DISEASE
     Route: 048
     Dates: start: 20110202, end: 20110206
  2. MOTILIUM [Concomitant]
     Route: 048
     Dates: start: 20110202, end: 20110206
  3. MUCOSTA [Suspect]
     Route: 048
     Dates: start: 20110202, end: 20110206
  4. GASLON N [Concomitant]
     Route: 048
     Dates: start: 20110124, end: 20110201
  5. FAMOTIDINE [Concomitant]
     Route: 048
     Dates: start: 20110124, end: 20110201

REACTIONS (1)
  - LIVER DISORDER [None]
